FAERS Safety Report 9300473 (Version 1)
Quarter: 2013Q2

REPORT INFORMATION
  Report Type: Report from Study
  Country: IE (occurrence: IE)
  Receive Date: 20130521
  Receipt Date: 20130521
  Transmission Date: 20140414
  Serious: Yes (Hospitalization)
  Sender: FDA-Public Use
  Company Number: IE-ASTELLAS-2012US010776

PATIENT
  Age: 6 Year
  Sex: Male

DRUGS (2)
  1. TACROLIMUS OINTMENT [Suspect]
     Indication: DERMATITIS ATOPIC
     Dosage: 0.1 %, UID/QD
     Route: 061
     Dates: start: 200905
  2. TACROLIMUS OINTMENT [Suspect]
     Dosage: 0.1 %, ONCE A DAY, TWICE WEEKLY
     Dates: start: 200905

REACTIONS (4)
  - Off label use [Unknown]
  - Eczema [Unknown]
  - Herpes virus infection [Unknown]
  - Impetigo [Recovered/Resolved]
